FAERS Safety Report 21068913 (Version 1)
Quarter: 2022Q3

REPORT INFORMATION
  Report Type: Spontaneous
  Country: US (occurrence: None)
  Receive Date: 20220711
  Receipt Date: 20220711
  Transmission Date: 20221026
  Serious: No
  Sender: FDA-Public Use
  Company Number: None

PATIENT
  Age: 46 Year
  Sex: Female
  Weight: 74.25 kg

DRUGS (1)
  1. NEUTROGENA ULTRA SHEER [Suspect]
     Active Substance: AVOBENZONE\HOMOSALATE\OCTISALATE\OCTOCRYLENE\OXYBENZONE
     Indication: Prophylaxis against solar radiation
     Dosage: OTHER STRENGTH : SPF;?FREQUENCY : AS NEEDED;?OTHER ROUTE : TOPICAL AEROSOL SPRAY;?
     Route: 061
     Dates: start: 20220707, end: 20220711

REACTIONS (3)
  - Nonspecific reaction [None]
  - Pruritus [None]
  - Rash [None]

NARRATIVE: CASE EVENT DATE: 20220708
